FAERS Safety Report 14716930 (Version 2)
Quarter: 2018Q2

REPORT INFORMATION
  Report Type: Spontaneous
  Country: LV (occurrence: LV)
  Receive Date: 20180404
  Receipt Date: 20180416
  Transmission Date: 20180711
  Serious: Yes (Other)
  Sender: FDA-Public Use
  Company Number: LV-B.I. PHARMACEUTICALS,INC./RIDGEFIELD-2018-BI-018406

PATIENT
  Age: 76 Year
  Sex: Female

DRUGS (3)
  1. GILOTRIF [Suspect]
     Active Substance: AFATINIB
     Indication: EGFR GENE MUTATION
     Route: 048
     Dates: start: 20160901, end: 20180201
  2. GILOTRIF [Suspect]
     Active Substance: AFATINIB
     Indication: LUNG ADENOCARCINOMA
  3. CONCOR [Concomitant]
     Active Substance: BISOPROLOL FUMARATE
     Indication: ESSENTIAL HYPERTENSION
     Dosage: STRENGTH: 5MG/5MG
     Route: 065

REACTIONS (4)
  - Diarrhoea [Recovered/Resolved]
  - Palmar-plantar erythrodysaesthesia syndrome [Recovered/Resolved]
  - Liver function test abnormal [Recovered/Resolved]
  - Malignant neoplasm progression [Unknown]

NARRATIVE: CASE EVENT DATE: 201609
